FAERS Safety Report 5259598-6 (Version None)
Quarter: 2007Q1

REPORT INFORMATION
  Report Type: 
  Country: None (occurrence: None)
  Receive Date: 20070307
  Receipt Date: 20070307
  Transmission Date: 20070707
  Serious: Yes (Hospitalization, Other)
  Sender: FDA-Public Use
  Company Number: None

PATIENT
  Age: 39 Year
  Sex: Female
  Weight: 46.7205 kg

DRUGS (5)
  1. EMSAM [Suspect]
     Indication: ANXIETY
     Dosage: 6 MG/24 HOUR PATCH 1/24 HOURS TRANSDERMAL
     Route: 062
     Dates: start: 20070214, end: 20070307
  2. EMSAM [Suspect]
     Indication: DEPRESSION
     Dosage: 6 MG/24 HOUR PATCH 1/24 HOURS TRANSDERMAL
     Route: 062
     Dates: start: 20070214, end: 20070307
  3. KLONAPIN [Concomitant]
  4. NEURONTIN [Concomitant]
  5. BENEDRYL [Concomitant]

REACTIONS (12)
  - AGGRESSION [None]
  - AGITATION [None]
  - ANGER [None]
  - ANXIETY [None]
  - COGNITIVE DISORDER [None]
  - GASTROINTESTINAL DISORDER [None]
  - INSOMNIA [None]
  - IRRITABILITY [None]
  - MIGRAINE [None]
  - MOOD SWINGS [None]
  - PANIC DISORDER [None]
  - SUICIDAL IDEATION [None]
